FAERS Safety Report 7357289-9 (Version None)
Quarter: 2011Q1

REPORT INFORMATION
  Report Type: 
  Country: None (occurrence: None)
  Receive Date: 20110311
  Receipt Date: 20110311
  Transmission Date: 20110831
  Serious: Yes (Other)
  Sender: FDA-Public Use
  Company Number: None

PATIENT
  Age: 54 Year
  Sex: Female
  Weight: 56.6996 kg

DRUGS (2)
  1. DEXILANT [Suspect]
     Indication: BARRETT'S OESOPHAGUS
     Dosage: 60MG ONCE A DAY PO
     Route: 048
     Dates: start: 20110118, end: 20110218
  2. DEXILANT [Suspect]
     Indication: GASTROOESOPHAGEAL REFLUX DISEASE
     Dosage: 60MG ONCE A DAY PO
     Route: 048
     Dates: start: 20110118, end: 20110218

REACTIONS (3)
  - VISION BLURRED [None]
  - FEELING ABNORMAL [None]
  - TREMOR [None]
